FAERS Safety Report 7727118-X (Version None)
Quarter: 2011Q3

REPORT INFORMATION
  Report Type: 
  Country: None (occurrence: None)
  Receive Date: 20110902
  Receipt Date: 20110826
  Transmission Date: 20111222
  Serious: Yes (Hospitalization, Other)
  Sender: FDA-Public Use
  Company Number: TR-ABBOTT-11P-161-0849970-00

PATIENT
  Age: 32 Year
  Sex: Female

DRUGS (2)
  1. ADALIMUMAB [Suspect]
     Indication: RHEUMATOID ARTHRITIS
     Route: 050
     Dates: start: 20070101
  2. ADALIMUMAB [Suspect]
     Route: 050

REACTIONS (3)
  - SWOLLEN TONGUE [None]
  - ANGIOEDEMA [None]
  - INJECTION SITE ERYTHEMA [None]
